FAERS Safety Report 4283777-8 (Version None)
Quarter: 2004Q1

REPORT INFORMATION
  Report Type: 
  Country: None (occurrence: None)
  Receive Date: 20040121
  Receipt Date: 20030328
  Transmission Date: 20041129
  Serious: Yes (Other)
  Sender: FDA-Public Use
  Company Number: A03200300659

PATIENT
  Age: 64 Year
  Sex: Male

DRUGS (4)
  1. PLAVIX [Suspect]
     Indication: ANGIOPLASTY
     Dosage: 75 MG QD - ORAL
     Route: 048
     Dates: start: 20030314, end: 20030101
  2. PLAVIX [Suspect]
     Indication: GAMMA RADIATION THERAPY
     Dosage: 75 MG QD - ORAL
     Route: 048
     Dates: start: 20030314, end: 20030101
  3. PLAVIX [Suspect]
     Indication: STENT OCCLUSION
     Dosage: 75 MG QD - ORAL
     Route: 048
     Dates: start: 20030314, end: 20030101
  4. ACETYLSALICYLIC ACID [Concomitant]

REACTIONS (4)
  - BLISTER [None]
  - DIARRHOEA [None]
  - RASH PRURITIC [None]
  - SWELLING FACE [None]
